FAERS Safety Report 10083794 (Version 4)
Quarter: 2015Q1

REPORT INFORMATION
  Report Type: Spontaneous
  Country: JP (occurrence: JP)
  Receive Date: 20140417
  Receipt Date: 20150113
  Transmission Date: 20150720
  Serious: Yes (Death, Life-Threatening, Other)
  Sender: FDA-Public Use
  Company Number: JP-009507513-1404JPN005262

PATIENT
  Age: 79 Year
  Sex: Male
  Weight: 49 kg

DRUGS (12)
  1. ROCEPHIN [Concomitant]
     Active Substance: CEFTRIAXONE SODIUM
     Indication: PNEUMONIA ASPIRATION
     Dosage: 1 G, QD
     Route: 041
     Dates: start: 20140317, end: 20140320
  2. VANCOMYCIN [Concomitant]
     Active Substance: VANCOMYCIN
     Indication: PNEUMONIA ASPIRATION
     Dosage: 1.5 G, BID
     Route: 041
     Dates: start: 20140327, end: 20140403
  3. TEICOPLANIN [Concomitant]
     Active Substance: TEICOPLANIN
     Indication: DEVICE RELATED INFECTION
  4. TEICOPLANIN [Concomitant]
     Active Substance: TEICOPLANIN
     Indication: PNEUMONIA ASPIRATION
     Dosage: 400 MG, QD
     Route: 041
     Dates: start: 20140320, end: 20140327
  5. PANTOL [Concomitant]
     Active Substance: DEXPANTHENOL
     Indication: ILEUS PARALYTIC
     Dosage: 250 MG, QD
     Route: 051
     Dates: start: 20140325, end: 20140407
  6. CANCIDAS [Suspect]
     Active Substance: CASPOFUNGIN ACETATE
     Indication: DEVICE RELATED INFECTION
     Dosage: 50 MG, QD
     Route: 041
     Dates: start: 20140327, end: 20140406
  7. HEPARIN SODIUM. [Suspect]
     Active Substance: HEPARIN SODIUM
     Indication: ATRIAL FIBRILLATION
     Dosage: 5 THOUSAND -MILLION UNIT, DIVIDED DOSE FREQUENCY UNKNOWN
     Route: 041
     Dates: start: 20140310
  8. HEPARIN SODIUM. [Suspect]
     Active Substance: HEPARIN SODIUM
     Dosage: 5 THOUSAND -MILLION UNIT, DIVIDED DOSE FREQUENCY UNKNOWN
     Route: 041
     Dates: end: 20140405
  9. MEROPEN [Concomitant]
     Active Substance: MEROPENEM
     Indication: PNEUMONIA ASPIRATION
     Dosage: 1 G, TID
     Route: 041
     Dates: start: 20140319, end: 20140408
  10. VANCOMYCIN [Concomitant]
     Active Substance: VANCOMYCIN
     Indication: DEVICE RELATED INFECTION
  11. BISOLVON [Concomitant]
     Active Substance: BROMHEXINE HYDROCHLORIDE
     Indication: PNEUMONIA ASPIRATION
     Dosage: 4 MG, BID
     Route: 042
     Dates: start: 20140317, end: 20140408
  12. TAKEPRON [Concomitant]
     Active Substance: LANSOPRAZOLE
     Indication: GASTRIC ULCER HAEMORRHAGE
     Dosage: 30 MG, BID
     Route: 042
     Dates: start: 20140327, end: 20140408

REACTIONS (5)
  - Pyrexia [Unknown]
  - Acute respiratory distress syndrome [Fatal]
  - Activated partial thromboplastin time prolonged [Fatal]
  - Muscle haemorrhage [Unknown]
  - Shock haemorrhagic [Fatal]

NARRATIVE: CASE EVENT DATE: 20140402
